FAERS Safety Report 8535567-5 (Version None)
Quarter: 2012Q2

REPORT INFORMATION
  Report Type: 
  Country: None (occurrence: None)
  Receive Date: 20120412
  Receipt Date: 20100201
  Transmission Date: 20120825
  Serious: Yes (Other)
  Sender: FDA-Public Use
  Company Number: PHEHUS17456

PATIENT
  Weight: 75.7 kg

DRUGS (2)
  1. CLOZARIL [Suspect]
     Dosage: 200 MG, HS, 150 MG AM, ORAL
     Route: 048
     Dates: start: 20020101, end: 20090701
  2. PAROXETINE HYDROCHLORIDE [Concomitant]

REACTIONS (5)
  - PLATELET COUNT DECREASED [None]
  - AGRANULOCYTOSIS [None]
  - WHITE BLOOD CELL COUNT DECREASED [None]
  - NEUTROPENIA [None]
  - MONOCYTE COUNT INCREASED [None]
